FAERS Safety Report 6794582-2 (Version None)
Quarter: 2010Q2

REPORT INFORMATION
  Report Type: 
  Country: None (occurrence: None)
  Receive Date: 20100625
  Receipt Date: 20100614
  Transmission Date: 20101027
  Serious: Yes (Other)
  Sender: FDA-Public Use
  Company Number: CA-JNJFOC-20100605295

PATIENT
  Sex: Female
  Weight: 37.5 kg

DRUGS (1)
  1. REMICADE [Suspect]
     Indication: COLITIS ULCERATIVE
     Route: 042

REACTIONS (4)
  - BLOOD PRESSURE DECREASED [None]
  - HYPERHIDROSIS [None]
  - NAUSEA [None]
  - PALLOR [None]
